FAERS Safety Report 4464658-3 (Version None)
Quarter: 2004Q3

REPORT INFORMATION
  Report Type: 
  Country: None (occurrence: None)
  Receive Date: 20040929
  Receipt Date: 20040922
  Transmission Date: 20050211
  Serious: Yes (Death, Life-Threatening, Hospitalization)
  Sender: FDA-Public Use
  Company Number: 2004-00318

PATIENT
  Sex: Female

DRUGS (13)
  1. VELCADE [Suspect]
     Indication: MULTIPLE MYELOMA
  2. LEVOMEPROMAZINE (LEVOMEPROMAZINE) [Concomitant]
  3. DIGOXIN [Concomitant]
  4. FUROSEMIDE [Concomitant]
  5. METOCLOPRAMIDE [Concomitant]
  6. LACTULOSE [Concomitant]
  7. LEVOTHYROXINE SODIUM [Concomitant]
  8. PREDSOL (PREDNISOLONE SODIUM PHOSPHATE) [Concomitant]
  9. ACETAMINOPHEN [Concomitant]
  10. CODEINE (CODEINE) [Concomitant]
  11. OXAZEPAM [Concomitant]
  12. ESOMEPRAZOLE (ESOMEPRAZOLE) [Concomitant]
  13. VALACYCLOVIR HCL [Concomitant]

REACTIONS (5)
  - AMYLOIDOSIS [None]
  - COMA HEPATIC [None]
  - DISEASE PROGRESSION [None]
  - HEPATIC FAILURE [None]
  - THROMBOCYTOPENIA [None]
